FAERS Safety Report 25158580 (Version 1)
Quarter: 2025Q2

REPORT INFORMATION
  Report Type: Report from Study
  Country: CO (occurrence: CO)
  Receive Date: 20250404
  Receipt Date: 20250404
  Transmission Date: 20250717
  Serious: Yes (Hospitalization)
  Sender: ABBVIE
  Company Number: CO-ABBVIE-6210166

PATIENT
  Age: 58 Year
  Sex: Female
  Weight: 99 kg

DRUGS (1)
  1. SKYRIZI [Suspect]
     Active Substance: RISANKIZUMAB-RZAA
     Indication: Product used for unknown indication
     Route: 058
     Dates: start: 20241122

REACTIONS (4)
  - Urinary tract infection [Not Recovered/Not Resolved]
  - Dysuria [Unknown]
  - Nephrolithiasis [Unknown]
  - Back pain [Unknown]

NARRATIVE: CASE EVENT DATE: 20250313
